FAERS Safety Report 21607128 (Version 2)
Quarter: 2022Q4

REPORT INFORMATION
  Report Type: Spontaneous
  Country: US (occurrence: US)
  Receive Date: 20221117
  Receipt Date: 20221201
  Transmission Date: 20230112
  Serious: No
  Sender: FDA-Public Use
  Company Number: US-LUPIN PHARMACEUTICALS INC.-2022-13493

PATIENT
  Age: 4 Month
  Sex: Male

DRUGS (1)
  1. FAMOTIDINE [Suspect]
     Active Substance: FAMOTIDINE
     Indication: Gastrooesophageal reflux disease
     Dosage: 0.8 MILLILITER, TID
     Route: 048
     Dates: start: 202210

REACTIONS (2)
  - Expired product administered [Unknown]
  - No adverse event [Unknown]
